FAERS Safety Report 4743949-2 (Version None)
Quarter: 2005Q3

REPORT INFORMATION
  Report Type: 
  Country: None (occurrence: None)
  Receive Date: 20050810
  Receipt Date: 20050810
  Transmission Date: 20060218
  Serious: Yes (Disabling)
  Sender: FDA-Public Use
  Company Number: None

PATIENT
  Age: 71 Year
  Sex: Female

DRUGS (5)
  1. LUNESTA [Suspect]
     Indication: INSOMNIA
     Dosage: 1 TABLET AT BEDTIME
     Dates: start: 20050805, end: 20050806
  2. CLONAZEPAM [Concomitant]
  3. ATENOLOL [Concomitant]
  4. ATACAND HCT [Concomitant]
  5. RESTASIS [Concomitant]

REACTIONS (4)
  - BURNING SENSATION [None]
  - DEPRESSION [None]
  - MIGRAINE [None]
  - TINNITUS [None]
